FAERS Safety Report 6322718-6 (Version None)
Quarter: 2009Q3

REPORT INFORMATION
  Report Type: 
  Country: None (occurrence: None)
  Receive Date: 20090824
  Receipt Date: 20090309
  Transmission Date: 20100115
  Serious: No
  Sender: FDA-Public Use
  Company Number: US-ABBOTT-09P-163-0561776-00

PATIENT
  Sex: Male
  Weight: 78.088 kg

DRUGS (6)
  1. NIASPAN [Suspect]
     Indication: HIGH DENSITY LIPOPROTEIN DECREASED
     Dates: start: 20090201, end: 20090201
  2. SIMCOR [Suspect]
     Indication: HIGH DENSITY LIPOPROTEIN DECREASED
     Dates: start: 20090217, end: 20090309
  3. CRESTOR [Suspect]
     Indication: HIGH DENSITY LIPOPROTEIN DECREASED
     Dates: start: 20090201, end: 20090201
  4. CRESTOR [Suspect]
     Dates: start: 20090201, end: 20090201
  5. PLAVIX [Suspect]
     Indication: CARDIAC DISORDER
     Dates: start: 20090217
  6. ASPIRIN [Concomitant]
     Indication: CARDIAC DISORDER

REACTIONS (3)
  - GAIT DISTURBANCE [None]
  - PRURITUS [None]
  - URTICARIA [None]
